FAERS Safety Report 11467214 (Version 1)
Quarter: 2015Q3

REPORT INFORMATION
  Report Type: Spontaneous
  Country: US (occurrence: US)
  Receive Date: 20150908
  Receipt Date: 20150908
  Transmission Date: 20151125
  Serious: Yes (Hospitalization)
  Sender: FDA-Public Use
  Company Number: US-ROCHE-ITM201506IM017638

PATIENT
  Age: 71 Year
  Sex: Male
  Weight: 111.68 kg

DRUGS (1)
  1. ESBRIET [Suspect]
     Active Substance: PIRFENIDONE
     Indication: IDIOPATHIC PULMONARY FIBROSIS
     Dosage: 3 CAPSULES THRICE DAILY
     Route: 048
     Dates: start: 20140212

REACTIONS (10)
  - Blood urine present [Unknown]
  - Pulmonary thrombosis [Unknown]
  - Epistaxis [Unknown]
  - Nausea [Unknown]
  - Pneumonia [Recovered/Resolved]
  - Renal pain [Unknown]
  - Calculus bladder [Unknown]
  - Urinary bladder haemorrhage [Unknown]
  - Ear swelling [Unknown]
  - Rash [Recovered/Resolved]

NARRATIVE: CASE EVENT DATE: 201505
